FAERS Safety Report 25110289 (Version 1)
Quarter: 2025Q1

REPORT INFORMATION
  Report Type: Spontaneous
  Country: US (occurrence: US)
  Receive Date: 20250324
  Receipt Date: 20250324
  Transmission Date: 20250409
  Serious: Yes (Hospitalization, Other)
  Sender: APOTEX
  Company Number: US-APOTEX-2025AP003466

PATIENT
  Age: 80 Year
  Sex: Male

DRUGS (1)
  1. MIDODRINE [Suspect]
     Active Substance: MIDODRINE
     Indication: Hypotension
     Route: 065

REACTIONS (2)
  - Heart failure with reduced ejection fraction [Unknown]
  - Condition aggravated [Unknown]
